FAERS Safety Report 5022507-9 (Version None)
Quarter: 2006Q2

REPORT INFORMATION
  Report Type: 
  Country: None (occurrence: None)
  Receive Date: 20060605
  Receipt Date: 20060519
  Transmission Date: 20061013
  Serious: Yes (Other)
  Sender: FDA-Public Use
  Company Number: HK-2006-012234

PATIENT
  Age: 53 Year
  Sex: Male

DRUGS (3)
  1. FLUDARA [Suspect]
     Indication: B-CELL LYMPHOMA RECURRENT
     Dosage: 6 CYCLE,
     Dates: start: 19971001
  2. MITOXANTRONE [Suspect]
     Indication: B-CELL LYMPHOMA RECURRENT
     Dosage: 6 CYCLE,
     Dates: start: 19971001
  3. DEXAMETHASONE TAB [Concomitant]

REACTIONS (3)
  - CHROMOSOMAL DELETION [None]
  - MYELODYSPLASTIC SYNDROME [None]
  - PANCYTOPENIA [None]
